FAERS Safety Report 9644091 (Version 2)
Quarter: 2014Q1

REPORT INFORMATION
  Report Type: Not Available
  Country: FR (occurrence: FR)
  Receive Date: 20131024
  Receipt Date: 20140108
  Transmission Date: 20141002
  Serious: Yes (Hospitalization)
  Sender: FDA-Public Use
  Company Number: FR-NAPPMUNDI-GBR-2013-0016142

PATIENT
  Age: 47 Year
  Sex: Female

DRUGS (6)
  1. OXYCONTIN LP, COMPRIME PELLICULE A LIBERATION PROLONGEE [Suspect]
     Indication: ARTHRALGIA
     Dosage: 1 DF ONCE EVERY 2 DAYS
     Route: 048
     Dates: start: 20130831, end: 20130902
  2. RAMIPRIL [Suspect]
     Indication: HYPERTENSION
     Dosage: UNK
     Route: 048
     Dates: start: 201305, end: 20130902
  3. LODOZ [Concomitant]
  4. AMLOR [Concomitant]
  5. PAROXETINE [Concomitant]
  6. TAMOXIFENE [Concomitant]
     Dosage: UNK
     Dates: start: 20130515

REACTIONS (2)
  - Lip oedema [Recovered/Resolved]
  - Pruritus [Recovered/Resolved]
